FAERS Safety Report 5088377-8 (Version None)
Quarter: 2006Q3

REPORT INFORMATION
  Report Type: 
  Country: None (occurrence: None)
  Receive Date: 20060822
  Receipt Date: 20060809
  Transmission Date: 20061208
  Serious: Yes (Other)
  Sender: FDA-Public Use
  Company Number: 228683

PATIENT
  Sex: Female

DRUGS (4)
  1. MABTHERA (RITUXIMAB)CONC FOR SOLUTION FOR INFUSION [Suspect]
     Indication: SYSTEMIC LUPUS ERYTHEMATOSUS
     Dosage: 375 MG/M2, 1/WEEK, INTRAVENOUS
     Route: 042
  2. ACETAMINOPHEN [Concomitant]
  3. DEXCHLORPHENIRAMINE MALEATE [Concomitant]
  4. DEFLAZACORT [Concomitant]

REACTIONS (1)
  - COLITIS [None]
